FAERS Safety Report 4691999-7 (Version None)
Quarter: 2005Q2

REPORT INFORMATION
  Report Type: 
  Country: None (occurrence: None)
  Receive Date: 20050608
  Receipt Date: 20041001
  Transmission Date: 20051028
  Serious: Yes (Other)
  Sender: FDA-Public Use
  Company Number: 382038

PATIENT

DRUGS (3)
  1. ACCUTANE [Suspect]
     Indication: DRUG USE FOR UNKNOWN INDICATION
     Dosage: ORAL
     Route: 048
     Dates: start: 20040825
  2. ACCUTANE [Suspect]
     Indication: SELF-MEDICATION
     Dosage: ORAL
     Route: 048
     Dates: start: 20040825
  3. MERCILON (DESOGESTREL/ETHINYL ESTRADIOL) [Concomitant]

REACTIONS (1)
  - ABORTION INDUCED [None]
